FAERS Safety Report 4972867-X (Version None)
Quarter: 2006Q2

REPORT INFORMATION
  Report Type: 
  Country: None (occurrence: None)
  Receive Date: 20060410
  Receipt Date: 20060320
  Transmission Date: 20061013
  Serious: Yes (Hospitalization, Other)
  Sender: FDA-Public Use
  Company Number: US200603005306

PATIENT
  Age: 28 Year
  Sex: Female

DRUGS (3)
  1. HUMULIN N [Suspect]
     Indication: DIABETES MELLITUS
     Dates: start: 19870101
  2. HUMULIN R [Suspect]
     Indication: DIABETES MELLITUS
  3. HUMULIN L [Suspect]
     Indication: DIABETES MELLITUS

REACTIONS (8)
  - ASTHMA [None]
  - CONVULSION [None]
  - DIABETES MELLITUS INADEQUATE CONTROL [None]
  - DRUG INTOLERANCE [None]
  - HAEMATEMESIS [None]
  - HYPOGLYCAEMIC COMA [None]
  - VOMITING [None]
  - WEIGHT DECREASED [None]
